FAERS Safety Report 6718003-0 (Version None)
Quarter: 2010Q2

REPORT INFORMATION
  Report Type: 
  Country: None (occurrence: None)
  Receive Date: 20100510
  Receipt Date: 20100505
  Transmission Date: 20101027
  Serious: Yes (Death, Hospitalization, Other)
  Sender: FDA-Public Use
  Company Number: PHHY2010FR29195

PATIENT
  Sex: Female

DRUGS (3)
  1. CGP 57148B T35717+ [Suspect]
     Indication: CHRONIC MYELOID LEUKAEMIA
  2. FUROSEMIDE [Concomitant]
     Dosage: 40: 1.5 DF DAILY
  3. TAREG [Concomitant]
     Dosage: 80 MG DAILY

REACTIONS (20)
  - ABDOMINAL PAIN [None]
  - ALTERED STATE OF CONSCIOUSNESS [None]
  - BLOOD PRESSURE DECREASED [None]
  - CYANOSIS [None]
  - DEATH [None]
  - FAECAL VOMITING [None]
  - FAECES DISCOLOURED [None]
  - GASTROENTERITIS [None]
  - HEART RATE INCREASED [None]
  - HEPATIC FAILURE [None]
  - INTESTINAL INFARCTION [None]
  - LAPAROTOMY [None]
  - MESENTERIC ARTERY THROMBOSIS [None]
  - MESENTERIC VEIN THROMBOSIS [None]
  - PNEUMOPERITONEUM [None]
  - SHOCK [None]
  - SKIN DISCOLOURATION [None]
  - SMALL INTESTINAL PERFORATION [None]
  - SOMNOLENCE [None]
  - TACHYPNOEA [None]
